FAERS Safety Report 14669130 (Version 1)
Quarter: 2018Q1

REPORT INFORMATION
  Report Type: Spontaneous
  Country: GB (occurrence: GB)
  Receive Date: 20180322
  Receipt Date: 20180322
  Transmission Date: 20180509
  Serious: Yes (Death, Other)
  Sender: FDA-Public Use
  Company Number: GB-CLINIGEN GROUP PLC/ CLINIGEN HEALTHCARE LTD-GB-CLGN-18-00097

PATIENT
  Age: 11 Year
  Sex: Male

DRUGS (15)
  1. METHYLPREDNISOLONE. [Concomitant]
     Active Substance: METHYLPREDNISOLONE
     Indication: TRANSPLANT FAILURE
  2. GANCICLOVIR. [Suspect]
     Active Substance: GANCICLOVIR
  3. ITRACONAZOLE. [Concomitant]
     Active Substance: ITRACONAZOLE
     Indication: INFECTION PROPHYLAXIS
     Route: 048
  4. ACICLOVIR [Concomitant]
     Active Substance: ACYCLOVIR
  5. MEROPENEM. [Concomitant]
     Active Substance: MEROPENEM
     Indication: TRANSPLANT FAILURE
  6. IMMUNGLOBULIN (IMMUNOGLOBULIN HUMAN NORMAL) [Concomitant]
     Active Substance: HUMAN IMMUNOGLOBULIN G
     Indication: TRANSPLANT FAILURE
  7. FOSCARNET SODIUM. [Suspect]
     Active Substance: FOSCARNET SODIUM
     Route: 042
  8. G-CSF [Concomitant]
     Active Substance: GRANULOCYTE COLONY-STIMULATING FACTOR NOS
     Indication: TRANSPLANT FAILURE
     Route: 042
  9. ACICLOVIR [Concomitant]
     Active Substance: ACYCLOVIR
     Indication: INFECTION PROPHYLAXIS
     Route: 042
  10. ACICLOVIR [Concomitant]
     Active Substance: ACYCLOVIR
     Indication: TRANSPLANT FAILURE
     Route: 048
  11. PENTAMIDINE [Concomitant]
     Active Substance: PENTAMIDINE
     Indication: INFECTION PROPHYLAXIS
  12. CIPROFLOXACINE [Concomitant]
     Active Substance: CIPROFLOXACIN
     Indication: INFECTION PROPHYLAXIS
     Route: 048
  13. FOSCARNET SODIUM. [Suspect]
     Active Substance: FOSCARNET SODIUM
     Route: 042
  14. FOSCARNET SODIUM. [Suspect]
     Active Substance: FOSCARNET SODIUM
     Indication: HUMAN HERPESVIRUS 6 INFECTION
     Route: 042
  15. GANCICLOVIR. [Suspect]
     Active Substance: GANCICLOVIR
     Indication: HUMAN HERPESVIRUS 6 INFECTION

REACTIONS (6)
  - Liver function test abnormal [Fatal]
  - Pancytopenia [Unknown]
  - Pneumonitis [Fatal]
  - Hepatomegaly [Unknown]
  - Sepsis [Fatal]
  - Off label use [Unknown]
